APPROVED DRUG PRODUCT: BUMETANIDE
Active Ingredient: BUMETANIDE
Strength: 2MG
Dosage Form/Route: TABLET;ORAL
Application: A202900 | Product #003 | TE Code: AB
Applicant: ZYDUS PHARMACEUTICALS USA INC
Approved: Apr 30, 2018 | RLD: No | RS: No | Type: RX